FAERS Safety Report 25715519 (Version 1)
Quarter: 2025Q3

REPORT INFORMATION
  Report Type: Spontaneous
  Country: US (occurrence: US)
  Receive Date: 20250822
  Receipt Date: 20250822
  Transmission Date: 20251021
  Serious: No
  Sender: BIOCON
  Company Number: US-MIMS-BCONMC-6313

PATIENT

DRUGS (1)
  1. HULIO [Suspect]
     Active Substance: ADALIMUMAB-FKJP
     Indication: Rheumatoid arthritis
     Dosage: UNK, 1 ONCE A WEEK
     Route: 065
     Dates: start: 20240710

REACTIONS (9)
  - Throat irritation [Unknown]
  - Eye pruritus [Unknown]
  - Ear pruritus [Unknown]
  - Headache [Unknown]
  - Sinusitis [Unknown]
  - Rhinorrhoea [Unknown]
  - Secretion discharge [Unknown]
  - Product storage error [Unknown]
  - Product administration error [Unknown]
